FAERS Safety Report 5229050-2 (Version None)
Quarter: 2007Q1

REPORT INFORMATION
  Report Type: 
  Country: None (occurrence: None)
  Receive Date: 20061201
  Receipt Date: 20060113
  Transmission Date: 20070707
  Serious: Yes (Hospitalization)
  Sender: FDA-Public Use
  Company Number: 2006-137185-NL

PATIENT
  Age: 47 Year
  Sex: Female
  Weight: 72.6 kg

DRUGS (6)
  1. NUVARING [Suspect]
     Indication: CONTRACEPTION
     Dosage: VAGINAL, 3 WEEKS IN/ 1 WEEK OUT
     Route: 067
     Dates: start: 20041101, end: 20060109
  2. NUVARING [Suspect]
     Indication: MENSTRUATION IRREGULAR
     Dosage: VAGINAL, 3 WEEKS IN/ 1 WEEK OUT
     Route: 067
     Dates: start: 20041101, end: 20060109
  3. LEXAPRO [Concomitant]
  4. WELLBUTRIN [Concomitant]
  5. NAPROXEN [Concomitant]
  6. AMBIEN [Concomitant]

REACTIONS (2)
  - PULMONARY EMBOLISM [None]
  - THROMBOSIS [None]
